FAERS Safety Report 20997850 (Version 1)
Quarter: 2022Q2

REPORT INFORMATION
  Report Type: Spontaneous
  Country: US (occurrence: None)
  Receive Date: 20220622
  Receipt Date: 20220622
  Transmission Date: 20220721
  Serious: Yes (Hospitalization)
  Sender: FDA-Public Use
  Company Number: None

PATIENT
  Age: 41 Year
  Sex: Female

DRUGS (2)
  1. AMBRISENTAN [Suspect]
     Active Substance: AMBRISENTAN
     Indication: Pulmonary arterial hypertension
     Dosage: FREQUENCY : DAILY;?
     Route: 048
     Dates: start: 20200316
  2. AMBRISENTAN [Suspect]
     Active Substance: AMBRISENTAN
     Indication: Heritable pulmonary arterial hypertension

REACTIONS (10)
  - Dyspnoea [None]
  - Chest pain [None]
  - Pyrexia [None]
  - Ear disorder [None]
  - Vertigo [None]
  - Presyncope [None]
  - Lung opacity [None]
  - Bradycardia [None]
  - Presyncope [None]
  - Pneumonia [None]

NARRATIVE: CASE EVENT DATE: 20220613
